FAERS Safety Report 6742142-1 (Version None)
Quarter: 2010Q2

REPORT INFORMATION
  Report Type: 
  Country: None (occurrence: None)
  Receive Date: 20100526
  Receipt Date: 20100517
  Transmission Date: 20101027
  Serious: Yes (Other)
  Sender: FDA-Public Use
  Company Number: NL-ELI_LILLY_AND_COMPANY-NL201005004110

PATIENT
  Sex: Female

DRUGS (3)
  1. HUMALOG [Suspect]
     Indication: DIABETES MELLITUS
     Dosage: 26 IE (UNSPECIFIED), DAILY (1/D)
     Route: 065
  2. HUMALOG [Suspect]
     Dosage: 24 IE (UNSPECIFIED), DAILY (1/D)
     Route: 065
  3. HUMALOG MIX 75/25 [Suspect]
     Dosage: UNK, UNKNOWN
     Route: 065

REACTIONS (3)
  - BLOOD GLUCOSE INCREASED [None]
  - DISORIENTATION [None]
  - DRUG DISPENSING ERROR [None]
